FAERS Safety Report 7816214-4 (Version None)
Quarter: 2011Q4

REPORT INFORMATION
  Report Type: 
  Country: None (occurrence: None)
  Receive Date: 20111015
  Receipt Date: 20111003
  Transmission Date: 20120403
  Serious: Yes (Other)
  Sender: FDA-Public Use
  Company Number: KR-ROCHE-1001734

PATIENT
  Sex: Male

DRUGS (5)
  1. XELODA [Suspect]
     Indication: OESOPHAGEAL SQUAMOUS CELL CARCINOMA
     Route: 048
  2. FAMOTIDINE [Concomitant]
  3. DEXAMETHASONE [Concomitant]
  4. PHENIRAMINE MALEATE [Concomitant]
  5. PACLITAXEL [Suspect]
     Indication: OESOPHAGEAL SQUAMOUS CELL CARCINOMA
     Route: 042

REACTIONS (10)
  - LEUKOPENIA [None]
  - FEBRILE NEUTROPENIA [None]
  - ASTHENIA [None]
  - ANAEMIA [None]
  - NEUROPATHY PERIPHERAL [None]
  - NEUTROPENIA [None]
  - STOMATITIS [None]
  - PALMAR-PLANTAR ERYTHRODYSAESTHESIA SYNDROME [None]
  - NAIL DISORDER [None]
  - PNEUMONITIS [None]
